FAERS Safety Report 5328715-1 (Version None)
Quarter: 2007Q2

REPORT INFORMATION
  Report Type: 
  Country: None (occurrence: None)
  Receive Date: 20070518
  Receipt Date: 20070508
  Transmission Date: 20071010
  Serious: Yes (Other)
  Sender: FDA-Public Use
  Company Number: UG-GILEAD-2007-0012053

PATIENT
  Age: 38 Year
  Sex: Female

DRUGS (8)
  1. VIREAD [Suspect]
     Indication: HIV INFECTION
     Route: 048
     Dates: start: 20051216
  2. VIREAD [Suspect]
     Route: 048
     Dates: start: 20030523, end: 20051111
  3. EPIVIR [Suspect]
     Indication: HIV INFECTION
     Route: 048
     Dates: start: 20051216
  4. EPIVIR [Suspect]
     Route: 048
     Dates: start: 20030523, end: 20051111
  5. ZERIT [Suspect]
     Indication: HIV INFECTION
     Route: 048
     Dates: start: 20050322, end: 20051028
  6. ZERIT [Suspect]
     Route: 048
     Dates: start: 20030523, end: 20050321
  7. VIRAMUNE [Suspect]
     Indication: HIV INFECTION
     Route: 048
     Dates: start: 20051216
  8. VIRAMUNE [Suspect]
     Route: 048
     Dates: start: 20051028, end: 20051111

REACTIONS (1)
  - STILLBIRTH [None]
